FAERS Safety Report 12544603 (Version 1)
Quarter: 2016Q3

REPORT INFORMATION
  Report Type: Spontaneous
  Country: US (occurrence: US)
  Receive Date: 20160711
  Receipt Date: 20160711
  Transmission Date: 20161109
  Serious: Yes (Hospitalization, Other)
  Sender: FDA-Public Use
  Company Number: US-DSJP-DSU-2015-133806

PATIENT
  Sex: Female
  Weight: 99.77 kg

DRUGS (1)
  1. BENICAR HCT [Suspect]
     Active Substance: HYDROCHLOROTHIAZIDE\OLMESARTAN MEDOXOMIL
     Indication: HYPERTENSION
     Dosage: 40/25 MG, UNK
     Dates: start: 200211, end: 2013

REACTIONS (6)
  - Anal incontinence [Unknown]
  - Malabsorption [Not Recovered/Not Resolved]
  - Dizziness [Unknown]
  - Acute kidney injury [Unknown]
  - Lactose intolerance [Unknown]
  - Syncope [Unknown]

NARRATIVE: CASE EVENT DATE: 2002
